FAERS Safety Report 5658769-4 (Version None)
Quarter: 2008Q1

REPORT INFORMATION
  Report Type: 
  Country: None (occurrence: None)
  Receive Date: 20080310
  Receipt Date: 20070414
  Transmission Date: 20080703
  Serious: No
  Sender: FDA-Public Use
  Company Number: US-BAYER-200711122BCC

PATIENT
  Age: 55 Year
  Sex: Female
  Weight: 86 kg

DRUGS (5)
  1. ALEVE [Suspect]
     Indication: DRUG USE FOR UNKNOWN INDICATION
     Dosage: TOTAL DAILY DOSE: 880 MG  UNIT DOSE: 220 MG
     Route: 048
     Dates: start: 20070414
  2. WELLBUTRIN [Concomitant]
  3. SYNTHROID [Concomitant]
  4. CLARINEX [Concomitant]
  5. VITAMIN E [Concomitant]

REACTIONS (1)
  - VOMITING [None]
